FAERS Safety Report 8021941-2 (Version None)
Quarter: 2011Q4

REPORT INFORMATION
  Report Type: 
  Country: None (occurrence: None)
  Receive Date: 20111230
  Receipt Date: 20111219
  Transmission Date: 20120403
  Serious: Yes (Hospitalization, Other)
  Sender: FDA-Public Use
  Company Number: 2011MA017892

PATIENT
  Sex: Female
  Weight: 82.5547 kg

DRUGS (23)
  1. TRENTAL [Concomitant]
  2. NITROGLYCERIN [Concomitant]
  3. HUMULIN R [Concomitant]
  4. CADUET [Concomitant]
  5. LASIX [Concomitant]
  6. PROTONIX [Concomitant]
  7. SOLU-MEDROL [Concomitant]
  8. POTASSIUM CHLORIDE [Concomitant]
  9. ALBUTEROL [Concomitant]
  10. AMITRIPTYLINE HCL [Concomitant]
  11. LASIX [Concomitant]
  12. PLAVIX [Concomitant]
  13. HUMALOG [Concomitant]
  14. ATROVENT [Concomitant]
  15. ASPIRIN [Concomitant]
  16. PRINIVIL [Concomitant]
  17. DARVOCET [Concomitant]
  18. DIGOXIN [Suspect]
     Indication: CARDIAC FAILURE CONGESTIVE
     Dosage: 125 MCG, QD, PO
     Route: 048
     Dates: start: 20060810, end: 20080229
  19. JANUVIA [Concomitant]
  20. LANTUS [Concomitant]
  21. TOPROL-XL [Concomitant]
  22. LISINOPRIL [Concomitant]
  23. ARMODAFINIL [Concomitant]

REACTIONS (33)
  - HYPERTENSION [None]
  - AORTIC VALVE INCOMPETENCE [None]
  - AORTIC VALVE SCLEROSIS [None]
  - PAIN IN EXTREMITY [None]
  - CARDIOVASCULAR DISORDER [None]
  - CARDIAC FAILURE [None]
  - DEMENTIA [None]
  - HYPERTENSIVE HEART DISEASE [None]
  - DEHYDRATION [None]
  - ROAD TRAFFIC ACCIDENT [None]
  - MITRAL VALVE INCOMPETENCE [None]
  - CORONARY ARTERY DISEASE [None]
  - OBESITY [None]
  - IMPAIRED HEALING [None]
  - PERIPHERAL VASCULAR DISORDER [None]
  - CARDIAC FAILURE CONGESTIVE [None]
  - DEPRESSION [None]
  - INJURY [None]
  - CEREBROVASCULAR DISORDER [None]
  - URINARY TRACT INFECTION [None]
  - CARDIAC MURMUR [None]
  - SKIN ULCER [None]
  - HYPERLIPIDAEMIA [None]
  - RESPIRATORY FAILURE [None]
  - MENTAL DISORDER [None]
  - DYSLIPIDAEMIA [None]
  - TRAUMATIC LUNG INJURY [None]
  - PULMONARY OEDEMA [None]
  - CAROTID ARTERIOSCLEROSIS [None]
  - NEUROPATHY PERIPHERAL [None]
  - ANGINA PECTORIS [None]
  - CARDIOMYOPATHY [None]
  - DYSPHAGIA [None]
